FAERS Safety Report 13098525 (Version 1)
Quarter: 2017Q1

REPORT INFORMATION
  Report Type: Spontaneous
  Country: FR (occurrence: FR)
  Receive Date: 20170109
  Receipt Date: 20170109
  Transmission Date: 20170428
  Serious: Yes (Hospitalization)
  Sender: FDA-Public Use
  Company Number: FR-SA-2017SA002938

PATIENT
  Age: 74 Year
  Sex: Male

DRUGS (18)
  1. LOXEN LP [Suspect]
     Active Substance: NICARDIPINE
     Indication: HYPERTENSION
     Dosage: STRENGTH- 50 MG
     Route: 048
     Dates: start: 20161113, end: 20161113
  2. CARDENSIEL [Suspect]
     Active Substance: BISOPROLOL FUMARATE
     Route: 048
  3. ZELITREX [Concomitant]
     Active Substance: VALACYCLOVIR HYDROCHLORIDE
     Dosage: ONCE IN 2 DAYS
     Route: 048
  4. ASPEGIC [Concomitant]
     Active Substance: ASPIRIN DL-LYSINE
     Route: 048
  5. ZOPICLONE [Suspect]
     Active Substance: ZOPICLONE
     Route: 065
  6. EUPRESSYL [Suspect]
     Active Substance: URAPIDIL
     Route: 048
  7. ZOPICLONE [Suspect]
     Active Substance: ZOPICLONE
     Route: 048
     Dates: start: 20161113, end: 20161113
  8. REVLIMID [Concomitant]
     Active Substance: LENALIDOMIDE
     Route: 048
     Dates: start: 201605
  9. BACTRIM [Concomitant]
     Active Substance: SULFAMETHOXAZOLE\TRIMETHOPRIM
     Dosage: 3 TIMES PER WEEK
     Route: 048
  10. LASILIX [Concomitant]
     Active Substance: FUROSEMIDE
     Dosage: COMPRIME SECABLE
     Route: 048
  11. CO-APROVEL [Suspect]
     Active Substance: HYDROCHLOROTHIAZIDE\IRBESARTAN
     Indication: HYPERTENSION
     Dosage: STRENGTH- 300/25 MG
     Route: 065
  12. LOXEN LP [Suspect]
     Active Substance: NICARDIPINE
     Indication: HYPERTENSION
     Dosage: STRENGTH- 50 MG
     Route: 048
  13. LEDERFOLINE [Concomitant]
     Active Substance: LEUCOVORIN CALCIUM
     Dosage: PER WEEK
  14. DEPAKOTE [Suspect]
     Active Substance: DIVALPROEX SODIUM
     Indication: EPILEPSY
     Dosage: STRENGTH- 250 MG
     Route: 065
  15. CO-APROVEL [Suspect]
     Active Substance: HYDROCHLOROTHIAZIDE\IRBESARTAN
     Indication: HYPERTENSION
     Route: 048
     Dates: start: 20161113
  16. DEPAKOTE [Suspect]
     Active Substance: DIVALPROEX SODIUM
     Indication: EPILEPSY
     Route: 048
     Dates: start: 20161113, end: 20161113
  17. CARDENSIEL [Suspect]
     Active Substance: BISOPROLOL FUMARATE
     Dosage: STRENGTH 1.25 MG
     Route: 048
     Dates: start: 20161113, end: 20161113
  18. EUPRESSYL [Suspect]
     Active Substance: URAPIDIL
     Route: 048
     Dates: start: 20161113, end: 20161113

REACTIONS (4)
  - Sinus bradycardia [Recovered/Resolved]
  - Somnolence [Recovered/Resolved]
  - Pallor [Recovered/Resolved]
  - Hypotension [Recovered/Resolved]

NARRATIVE: CASE EVENT DATE: 20161113
